FAERS Safety Report 7732447-X (Version None)
Quarter: 2011Q3

REPORT INFORMATION
  Report Type: 
  Country: None (occurrence: None)
  Receive Date: 20110906
  Receipt Date: 20110825
  Transmission Date: 20111222
  Serious: Yes (Other)
  Sender: FDA-Public Use
  Company Number: US-ASTRAZENECA-2010SE49041

PATIENT
  Age: 48 Year
  Sex: Female

DRUGS (1)
  1. NEXIUM [Suspect]
     Route: 048

REACTIONS (8)
  - PAIN [None]
  - MALAISE [None]
  - ABDOMINAL DISCOMFORT [None]
  - DYSPHAGIA [None]
  - DRUG DOSE OMISSION [None]
  - VOMITING [None]
  - CONDITION AGGRAVATED [None]
  - INSOMNIA [None]
